FAERS Safety Report 17351158 (Version 1)
Quarter: 2020Q1

REPORT INFORMATION
  Report Type: Spontaneous
  Country: US (occurrence: US)
  Receive Date: 20200130
  Receipt Date: 20200130
  Transmission Date: 20200409
  Serious: Yes (Death)
  Sender: FDA-Public Use
  Company Number: US-PFIZER INC-2020041517

PATIENT
  Sex: Male
  Weight: 1.59 kg

DRUGS (2)
  1. GENTAMYCIN [Concomitant]
     Active Substance: GENTAMICIN
     Dosage: UNK
  2. AMPICILLIN SODIUM. [Suspect]
     Active Substance: AMPICILLIN SODIUM
     Indication: INFECTION PROPHYLAXIS
     Dosage: UNK

REACTIONS (2)
  - Drug resistance [Fatal]
  - Escherichia sepsis [Fatal]
